FAERS Safety Report 20778835 (Version 1)
Quarter: 2022Q2

REPORT INFORMATION
  Report Type: Spontaneous
  Country: NL (occurrence: NL)
  Receive Date: 20220503
  Receipt Date: 20220503
  Transmission Date: 20220721
  Serious: Yes (Other)
  Sender: FDA-Public Use
  Company Number: NL-002147023-NVSC2022NL078822

PATIENT
  Sex: Female

DRUGS (1)
  1. PRAVASTATIN [Suspect]
     Active Substance: PRAVASTATIN
     Indication: Type IIa hyperlipidaemia
     Dosage: 20 MG
     Route: 065
     Dates: start: 2016

REACTIONS (11)
  - Arrhythmia [Unknown]
  - Retinal detachment [Unknown]
  - Flatulence [Unknown]
  - Arthropathy [Unknown]
  - Confusional state [Unknown]
  - Product shape issue [Unknown]
  - Abdominal pain [Unknown]
  - Pollakiuria [Unknown]
  - Alopecia [Unknown]
  - Gastrointestinal disorder [Unknown]
  - Product container issue [Unknown]

NARRATIVE: CASE EVENT DATE: 20190101
